FAERS Safety Report 5230382-2 (Version None)
Quarter: 2007Q1

REPORT INFORMATION
  Report Type: 
  Country: None (occurrence: None)
  Receive Date: 20070201
  Receipt Date: 20070119
  Transmission Date: 20070707
  Serious: Yes (Death)
  Sender: FDA-Public Use
  Company Number: 2007JP000258

PATIENT
  Sex: Male
  Weight: 35 kg

DRUGS (2)
  1. FUNGUARD (MICAFUNGIN) INJECTION [Suspect]
     Indication: ASPERGILLOSIS
     Dosage: 150 MG, D, IV DRIP
     Route: 041
     Dates: start: 20061220, end: 20070110
  2. VFEND [Concomitant]

REACTIONS (2)
  - PYOTHORAX [None]
  - SEPSIS [None]
